FAERS Safety Report 4772295-6 (Version None)
Quarter: 2005Q3

REPORT INFORMATION
  Report Type: 
  Country: None (occurrence: None)
  Receive Date: 20050919
  Receipt Date: 20050620
  Transmission Date: 20060218
  Serious: No
  Sender: FDA-Public Use
  Company Number: US-BRISTOL-MYERS SQUIBB COMPANY-13010202

PATIENT
  Age: 58 Year
  Sex: Female

DRUGS (1)
  1. DEFINITY [Suspect]

REACTIONS (3)
  - BACK PAIN [None]
  - CHEST PAIN [None]
  - HEADACHE [None]
